FAERS Safety Report 9558338 (Version 2)
Quarter: 2013Q4

REPORT INFORMATION
  Report Type: Spontaneous
  Country: US (occurrence: US)
  Receive Date: 20130926
  Receipt Date: 20131023
  Transmission Date: 20140711
  Serious: Yes (Other)
  Sender: FDA-Public Use
  Company Number: US-GE HEALTHCARE MEDICAL DIAGNOSTICS-OMPQ-PR-1309S-1163

PATIENT
  Sex: 0

DRUGS (4)
  1. OMNIPAQUE [Suspect]
     Indication: PRODUCT USED FOR UNKNOWN INDICATION
     Dosage: DOSE NOT REPORTED
     Route: 008
     Dates: start: 2013, end: 2013
  2. OMNIPAQUE [Suspect]
     Indication: DIAGNOSTIC PROCEDURE
  3. DEPO MEDROL [Suspect]
     Route: 008
  4. SODIUM CHLORIDE 0.9% INJECTION PRESERVATIVE FREE [Suspect]
     Route: 008

REACTIONS (1)
  - Meningitis fungal [Unknown]
